FAERS Safety Report 15684077 (Version 1)
Quarter: 2018Q4

REPORT INFORMATION
  Report Type: Spontaneous
  Country: ES (occurrence: ES)
  Receive Date: 20181204
  Receipt Date: 20181204
  Transmission Date: 20190205
  Serious: Yes (Other)
  Sender: FDA-Public Use
  Company Number: ES-ACCORD-094814

PATIENT
  Age: 57 Year
  Sex: Female

DRUGS (1)
  1. LETROZOLE PENSA [Suspect]
     Active Substance: LETROZOLE
     Indication: BREAST CANCER
     Dosage: STRENGTH: 2.5 MG?DAILY DOSE: 1 DF, QD
     Dates: start: 201712

REACTIONS (3)
  - Arthralgia [Unknown]
  - Alopecia [Recovered/Resolved]
  - Dupuytren^s contracture [Unknown]

NARRATIVE: CASE EVENT DATE: 201808
